FAERS Safety Report 4707071-3 (Version None)
Quarter: 2005Q3

REPORT INFORMATION
  Report Type: 
  Country: None (occurrence: None)
  Receive Date: 20050706
  Receipt Date: 20041118
  Transmission Date: 20060218
  Serious: Yes (Death, Hospitalization, Disabling)
  Sender: FDA-Public Use
  Company Number: PHHO2004ES16316

PATIENT
  Age: 39 Year
  Sex: Male
  Weight: 70 kg

DRUGS (3)
  1. NEORAL [Suspect]
     Indication: LIVER TRANSPLANT
     Dates: end: 20040908
  2. SIMULECT [Suspect]
     Indication: LIVER TRANSPLANT
     Dosage: 20 MG, ONCE/SINGLE
     Route: 042
     Dates: start: 20040901, end: 20040901
  3. SIMULECT [Suspect]
     Dosage: 20 MG, ONCE/SINGLE
     Route: 042
     Dates: start: 20040905, end: 20040905

REACTIONS (12)
  - CHOLESTASIS [None]
  - DEPRESSED LEVEL OF CONSCIOUSNESS [None]
  - DISEASE PROGRESSION [None]
  - ENCEPHALOPATHY [None]
  - GRAFT DYSFUNCTION [None]
  - HEPATIC ENZYME ABNORMAL [None]
  - KORSAKOFF'S PSYCHOSIS NON-ALCOHOLIC [None]
  - LUNG INFILTRATION [None]
  - PNEUMONIA ASPIRATION [None]
  - RESPIRATORY FAILURE [None]
  - SEPSIS [None]
  - TRACHEOSTOMY [None]
